FAERS Safety Report 8746498 (Version 2)
Quarter: 2012Q4

REPORT INFORMATION
  Report Type: Spontaneous
  Country: SE (occurrence: None)
  Receive Date: 20120802
  Receipt Date: 20120820
  Transmission Date: 20130627
  Serious: Yes (Other)
  Sender: FDA-Public Use
  Company Number: SE-1192781

PATIENT
  Age: 85 Year
  Sex: Male
  Weight: 65 kg

DRUGS (2)
  1. AZOPT [Suspect]
     Indication: INTRAOCULAR PRESSURE INCREASED
     Dosage: (OPHTHALMIC)
     Route: 047
  2. LATANOPROST [Concomitant]

REACTIONS (6)
  - Depression [None]
  - Asthma [None]
  - Gastric disorder [None]
  - Insomnia [None]
  - Ageusia [None]
  - Vision blurred [None]
